FAERS Safety Report 7208657-7 (Version None)
Quarter: 2010Q4

REPORT INFORMATION
  Report Type: 
  Country: None (occurrence: None)
  Receive Date: 20101222
  Receipt Date: 20101213
  Transmission Date: 20110411
  Serious: Yes (Hospitalization, Other)
  Sender: FDA-Public Use
  Company Number: 2010US004491

PATIENT
  Age: 67 Year
  Sex: Male

DRUGS (16)
  1. PROGRAF [Suspect]
     Indication: RENAL TRANSPLANT
     Dosage: 2 MG, BID, ORAL
     Route: 048
  2. CEFEPIME [Suspect]
     Indication: PRODUCT USED FOR UNKNOWN INDICATION
  3. LINEZOLID [Suspect]
     Indication: BACTERIURIA
     Dosage: 600 MG, /D
  4. VALGANCICLOVIR HCL [Suspect]
     Indication: PRODUCT USED FOR UNKNOWN INDICATION
  5. TAMSULOSIN HCL [Concomitant]
  6. CELLCEPT [Concomitant]
  7. PREDNISONE TAB [Concomitant]
  8. COUMADIN [Concomitant]
  9. ZAROOXOLYN (METOLAZONE) [Concomitant]
  10. TOPROL-XL [Concomitant]
  11. PROTONIX [Concomitant]
  12. LYRICA [Concomitant]
  13. ARANESP [Concomitant]
  14. CALCIUM (CALCIUM) [Concomitant]
  15. LANTUS [Concomitant]
  16. FERROUS SULFATE TAB [Concomitant]

REACTIONS (37)
  - ASTHENIA [None]
  - ATRIAL FIBRILLATION [None]
  - BLOOD PRESSURE DECREASED [None]
  - CARDIAC FAILURE CONGESTIVE [None]
  - CELLULITIS [None]
  - COMPLICATIONS OF TRANSPLANTED KIDNEY [None]
  - CYTOMEGALOVIRUS VIRAEMIA [None]
  - DIABETES MELLITUS [None]
  - DIABETES MELLITUS INADEQUATE CONTROL [None]
  - DILATATION ATRIAL [None]
  - DILATATION VENTRICULAR [None]
  - DRUG TOXICITY [None]
  - ENTEROCOCCUS TEST POSITIVE [None]
  - GAIT DISTURBANCE [None]
  - HYPERTENSION [None]
  - HYPOGLYCAEMIA [None]
  - HYPOXIA [None]
  - INFERIOR VENA CAVA DILATATION [None]
  - KETOACIDOSIS [None]
  - LEUKOPENIA [None]
  - MITRAL VALVE CALCIFICATION [None]
  - MITRAL VALVE INCOMPETENCE [None]
  - PAIN IN EXTREMITY [None]
  - PERIPHERAL VASCULAR DISORDER [None]
  - PLEURAL EFFUSION [None]
  - POOR PERIPHERAL CIRCULATION [None]
  - PULMONARY VALVE INCOMPETENCE [None]
  - PYREXIA [None]
  - REFUSAL OF TREATMENT BY PATIENT [None]
  - RENAL FAILURE ACUTE [None]
  - SKIN NECROSIS [None]
  - SKIN ULCER [None]
  - THROMBOCYTOPENIA [None]
  - TRICUSPID VALVE INCOMPETENCE [None]
  - URINARY TRACT INFECTION ENTEROCOCCAL [None]
  - VOLUME BLOOD INCREASED [None]
  - WOUND INFECTION [None]
